FAERS Safety Report 6795081-4 (Version None)
Quarter: 2010Q2

REPORT INFORMATION
  Report Type: 
  Country: None (occurrence: None)
  Receive Date: 20100625
  Receipt Date: 20100620
  Transmission Date: 20101027
  Serious: Yes (Hospitalization)
  Sender: FDA-Public Use
  Company Number: PHHO2010SE09319

PATIENT
  Sex: Male

DRUGS (4)
  1. NEORAL [Suspect]
     Indication: RENAL TRANSPLANT
     Dosage: 250 MG
     Route: 048
     Dates: start: 20080730
  2. NO TREATMENT RECEIVED NOMED [Suspect]
     Indication: RENAL TRANSPLANT
     Dosage: NO TREATMENT
  3. MYFORTIC [Concomitant]
     Indication: RENAL TRANSPLANT
  4. PREDNISOLONE [Concomitant]
     Indication: RENAL TRANSPLANT

REACTIONS (4)
  - DYSURIA [None]
  - ESCHERICHIA INFECTION [None]
  - PYREXIA [None]
  - URINARY TRACT INFECTION [None]
